FAERS Safety Report 8843258 (Version 3)
Quarter: 2012Q4

REPORT INFORMATION
  Report Type: 
  Country: JP (occurrence: JP)
  Receive Date: 20121016
  Receipt Date: 20121227
  Transmission Date: 20130627
  Serious: Yes (Hospitalization, Other)
  Sender: FDA-Public Use
  Company Number: PHHY2012JP090692

PATIENT
  Age: 81 Year
  Sex: Female

DRUGS (4)
  1. VALSARTAN + HCT [Suspect]
     Indication: HYPERTENSION
     Dosage: 1 DF (unk valsart/12.5mg HCT), daily
     Route: 048
  2. FUROSEMIDE [Suspect]
     Indication: HYPERTENSION
     Dosage: 40 mg, daily
     Route: 048
  3. GLIMEPIRIDE [Suspect]
     Indication: TYPE 2 DIABETES MELLITUS
     Dosage: 3 mg, daily
     Route: 048
  4. SITAGLIPTIN PHOSPHATE [Suspect]
     Indication: TYPE 2 DIABETES MELLITUS
     Dosage: 50 mg, daily
     Route: 048

REACTIONS (7)
  - Hypoglycaemia [Recovering/Resolving]
  - Loss of consciousness [Unknown]
  - Hyponatraemia [Recovering/Resolving]
  - Fall [Unknown]
  - Gait disturbance [Unknown]
  - Decreased appetite [Unknown]
  - Nausea [Unknown]
